FAERS Safety Report 15871882 (Version 1)
Quarter: 2019Q1

REPORT INFORMATION
  Report Type: Other
  Country: US (occurrence: US)
  Receive Date: 20190126
  Receipt Date: 20190126
  Transmission Date: 20190417
  Serious: No
  Sender: FDA-Public Use
  Company Number: US-ACORDA-ACO_147290_2018

PATIENT
  Age: 68 Year
  Sex: Female

DRUGS (4)
  1. AUBAGIO [Suspect]
     Active Substance: TERIFLUNOMIDE
     Dosage: 14 MILLIGRAM, QD
     Route: 048
     Dates: start: 201601
  2. AUBAGIO [Suspect]
     Active Substance: TERIFLUNOMIDE
     Indication: MULTIPLE SCLEROSIS
     Dosage: 7 MILLIGRAM, QD
     Route: 048
     Dates: start: 201601
  3. AMPYRA [Suspect]
     Active Substance: DALFAMPRIDINE
     Dosage: 10 MILLIGRAM, QD
     Route: 048
     Dates: end: 20180324
  4. AMPYRA [Suspect]
     Active Substance: DALFAMPRIDINE
     Indication: GAIT DISTURBANCE
     Dosage: 10 MG, BID
     Route: 048
     Dates: start: 20180119, end: 20180315

REACTIONS (14)
  - Asthenia [Recovered/Resolved]
  - Fatigue [Recovered/Resolved]
  - Dizziness [Recovered/Resolved]
  - Inappropriate schedule of product administration [Unknown]
  - Lethargy [Recovered/Resolved]
  - Diarrhoea [Recovered/Resolved]
  - Paraesthesia [Recovered/Resolved]
  - Drug ineffective [Unknown]
  - Vertigo [Recovered/Resolved]
  - Nausea [Not Recovered/Not Resolved]
  - Influenza like illness [Recovered/Resolved]
  - Malaise [Unknown]
  - Hypoaesthesia [Recovered/Resolved]
  - Condition aggravated [Recovered/Resolved]

NARRATIVE: CASE EVENT DATE: 20180221
